FAERS Safety Report 24242810 (Version 1)
Quarter: 2024Q3

REPORT INFORMATION
  Report Type: Report from Study
  Country: US (occurrence: US)
  Receive Date: 20240823
  Receipt Date: 20240823
  Transmission Date: 20241017
  Serious: Yes (Other)
  Sender: RANBAXY
  Company Number: US-SUN PHARMACEUTICAL INDUSTRIES LTD-2024R1-463150

PATIENT

DRUGS (1)
  1. DEXAMETHASONE [Suspect]
     Active Substance: DEXAMETHASONE
     Indication: B-cell lymphoma refractory
     Dosage: 10 MILLIGRAM
     Route: 048

REACTIONS (1)
  - Dementia [Unknown]
